FAERS Safety Report 6024943-0 (Version None)
Quarter: 2008Q4

REPORT INFORMATION
  Report Type: 
  Country: None (occurrence: None)
  Receive Date: 20081229
  Receipt Date: 20081211
  Transmission Date: 20090506
  Serious: Yes (Hospitalization)
  Sender: FDA-Public Use
  Company Number: 000011

PATIENT
  Age: 60 Year
  Sex: Male

DRUGS (1)
  1. EDEX [Suspect]
     Dosage: INTRAVENOUS DRIP
     Route: 041
     Dates: start: 20070901, end: 20070901

REACTIONS (1)
  - DRUG ERUPTION [None]
